FAERS Safety Report 14119511 (Version 5)
Quarter: 2018Q3

REPORT INFORMATION
  Report Type: Spontaneous
  Country: PL (occurrence: PL)
  Receive Date: 20171024
  Receipt Date: 20180924
  Transmission Date: 20181010
  Serious: Yes (Hospitalization)
  Sender: FDA-Public Use
  Company Number: PL-ALVOGEN-2017-ALVOGEN-093794

PATIENT
  Age: 34 Year
  Sex: Female

DRUGS (13)
  1. AMITRIPTYLINE [Interacting]
     Active Substance: AMITRIPTYLINE
     Indication: DEPRESSIVE SYMPTOM
  2. FLUOXETINE [Interacting]
     Active Substance: FLUOXETINE HYDROCHLORIDE
     Indication: BINGE EATING
     Route: 048
  3. FLUOXETINE [Interacting]
     Active Substance: FLUOXETINE HYDROCHLORIDE
     Indication: BINGE EATING
     Route: 048
  4. FLUOXETINE [Interacting]
     Active Substance: FLUOXETINE HYDROCHLORIDE
     Indication: DEPRESSIVE SYMPTOM
     Route: 048
  5. FLUOXETINE [Interacting]
     Active Substance: FLUOXETINE HYDROCHLORIDE
     Indication: DEPRESSIVE SYMPTOM
     Route: 048
  6. FLUOXETINE [Interacting]
     Active Substance: FLUOXETINE HYDROCHLORIDE
     Indication: VOMITING
     Route: 048
  7. FLUOXETINE [Interacting]
     Active Substance: FLUOXETINE HYDROCHLORIDE
     Indication: BINGE EATING
     Route: 048
  8. FLUOXETINE [Interacting]
     Active Substance: FLUOXETINE HYDROCHLORIDE
     Indication: VOMITING
     Route: 048
  9. FLUOXETINE [Interacting]
     Active Substance: FLUOXETINE HYDROCHLORIDE
     Indication: VOMITING
     Route: 048
  10. INSULIN [Concomitant]
     Active Substance: INSULIN NOS
     Indication: DIABETES MELLITUS
  11. METFORMIN [Concomitant]
     Active Substance: METFORMIN HYDROCHLORIDE
     Indication: DIABETES MELLITUS
  12. FLUOXETINE [Suspect]
     Active Substance: FLUOXETINE HYDROCHLORIDE
     Indication: DEPRESSIVE SYMPTOM
     Route: 048
  13. HYDROXYZINE [Interacting]
     Active Substance: HYDROXYZINE HYDROCHLORIDE
     Indication: DEPRESSIVE SYMPTOM

REACTIONS (18)
  - Drug interaction [Unknown]
  - Anxiety [Unknown]
  - Hyperglycaemia [Unknown]
  - Body mass index increased [Unknown]
  - Dysphoria [Unknown]
  - Binge eating [Unknown]
  - Vomiting [Unknown]
  - Underdose [Unknown]
  - Drug ineffective [Unknown]
  - Drug resistance [Unknown]
  - Hypoglycaemia [Unknown]
  - Irritability [Unknown]
  - Diet failure [Unknown]
  - Weight increased [Unknown]
  - Tension [Unknown]
  - Poor quality sleep [Unknown]
  - Insomnia [Unknown]
  - Electrocardiogram QT prolonged [Unknown]
